FAERS Safety Report 17716434 (Version 4)
Quarter: 2020Q2

REPORT INFORMATION
  Report Type: Spontaneous
  Country: US (occurrence: US)
  Receive Date: 20200428
  Receipt Date: 20200602
  Transmission Date: 20200714
  Serious: Yes (Hospitalization)
  Sender: FDA-Public Use
  Company Number: US-SA-2020SA108244

PATIENT

DRUGS (5)
  1. CABLIVI [Suspect]
     Active Substance: CAPLACIZUMAB-YHDP
     Indication: THROMBOTIC MICROANGIOPATHY
     Dosage: 11 MG, QD
     Route: 048
     Dates: start: 20200403
  2. XARELTO [Concomitant]
     Active Substance: RIVAROXABAN
     Route: 065
  3. CABLIVI [Suspect]
     Active Substance: CAPLACIZUMAB-YHDP
     Indication: THROMBOTIC MICROANGIOPATHY
     Dosage: 11 MG, QD
     Route: 048
     Dates: start: 20200403
  4. CABLIVI [Suspect]
     Active Substance: CAPLACIZUMAB-YHDP
     Indication: THROMBOTIC MICROANGIOPATHY
     Dosage: 11 MG, QD
     Route: 048
     Dates: start: 20200403
  5. CABLIVI [Suspect]
     Active Substance: CAPLACIZUMAB-YHDP
     Indication: THROMBOTIC MICROANGIOPATHY
     Dosage: 11 MG, QD
     Route: 048
     Dates: start: 20200403

REACTIONS (6)
  - Platelet count abnormal [Recovering/Resolving]
  - Injection site bruising [Recovering/Resolving]
  - COVID-19 [Unknown]
  - Incorrect route of product administration [Unknown]
  - Epistaxis [Unknown]
  - Body temperature increased [Recovered/Resolved]
